FAERS Safety Report 15331691 (Version 1)
Quarter: 2018Q3

REPORT INFORMATION
  Report Type: Spontaneous
  Country: TR (occurrence: TR)
  Receive Date: 20180829
  Receipt Date: 20180829
  Transmission Date: 20181010
  Serious: Yes (Life-Threatening)
  Sender: FDA-Public Use
  Company Number: TR-LPDUSPRD-20181561

PATIENT
  Age: 23 Year
  Sex: Female

DRUGS (1)
  1. FERINJECT [Suspect]
     Active Substance: FERRIC CARBOXYMALTOSE
     Dosage: 2 FLAKON
     Route: 041
     Dates: start: 20180720, end: 20180720

REACTIONS (4)
  - Ear swelling [Unknown]
  - Erythema [Unknown]
  - Dyspnoea [Unknown]
  - Rash [Unknown]

NARRATIVE: CASE EVENT DATE: 20180720
